FAERS Safety Report 5700144-8 (Version None)
Quarter: 2008Q2

REPORT INFORMATION
  Report Type: 
  Country: None (occurrence: None)
  Receive Date: 20080410
  Receipt Date: 20080404
  Transmission Date: 20081010
  Serious: Yes (Hospitalization)
  Sender: FDA-Public Use
  Company Number: PHRM2008FR01212

PATIENT
  Age: 33 Year
  Sex: Female

DRUGS (2)
  1. LAMISIL [Suspect]
     Dosage: 250 MG, QD
     Route: 048
     Dates: start: 20070424
  2. DROSPIRENONE W/ETHINYLESTRADIOL [Suspect]
     Indication: ORAL CONTRACEPTION
     Route: 048

REACTIONS (4)
  - CHEST PAIN [None]
  - DYSPNOEA [None]
  - FIBRINOLYSIS [None]
  - PULMONARY EMBOLISM [None]
